FAERS Safety Report 20204408 (Version 6)
Quarter: 2022Q1

REPORT INFORMATION
  Report Type: Report from Study
  Country: US (occurrence: US)
  Receive Date: 20211220
  Receipt Date: 20220227
  Transmission Date: 20220423
  Serious: Yes (Hospitalization, Other)
  Sender: FDA-Public Use
  Company Number: US-TEVA-2021-US-1988708

PATIENT
  Age: 60 Year
  Sex: Female
  Weight: 90.6 kg

DRUGS (31)
  1. IRINOTECAN [Suspect]
     Active Substance: IRINOTECAN
     Indication: Pancreatic carcinoma metastatic
     Route: 042
     Dates: start: 20211109, end: 20211109
  2. OXALIPLATIN [Suspect]
     Active Substance: OXALIPLATIN
     Indication: Pancreatic carcinoma metastatic
     Dosage: DAYS 1 AND 15 OF EACH 28-DAY CYCLE
     Route: 042
     Dates: start: 20211109, end: 20211109
  3. LEUCOVORIN [Suspect]
     Active Substance: LEUCOVORIN
     Indication: Pancreatic carcinoma metastatic
     Dosage: DAYS 1 AND 15 OF EACH 28-DAY CYCLE
     Route: 042
     Dates: start: 20211109, end: 20211109
  4. FLUOROURACIL [Suspect]
     Active Substance: FLUOROURACIL
     Indication: Pancreatic carcinoma metastatic
     Dosage: 48 HOUR CONTINUOUS INFUSION STARTING ON DAYS 1 AND 15 OF EACH 28-DAY CYCLE
     Route: 042
     Dates: start: 20211109, end: 20211109
  5. BUDIGALIMAB [Suspect]
     Active Substance: BUDIGALIMAB
     Indication: Pancreatic carcinoma metastatic
     Dosage: 181 ABBVE
     Route: 042
     Dates: start: 20211028, end: 20211028
  6. GILORALIMAB [Suspect]
     Active Substance: GILORALIMAB
     Indication: Pancreatic carcinoma metastatic
     Route: 042
     Dates: start: 20211028, end: 20211028
  7. ACETAMINOPHEN [Concomitant]
     Active Substance: ACETAMINOPHEN
     Indication: Pyrexia
     Dosage: 1 AS REQUIRED
     Route: 048
     Dates: start: 20211126
  8. LOVASTATIN [Concomitant]
     Active Substance: LOVASTATIN
     Indication: Hyperlipidaemia
     Dosage: 40 MILLIGRAM DAILY;
     Route: 048
     Dates: start: 20120101
  9. DOCUSATE SODIUM [Concomitant]
     Active Substance: DOCUSATE SODIUM
     Indication: Constipation
     Dosage: 100 MG, 1 IN 1 AS REQUIRED
     Route: 048
     Dates: start: 20211014
  10. POLYETHYLENE GLYCOL [Concomitant]
     Active Substance: POLYETHYLENE GLYCOL
     Indication: Constipation
     Dosage: AS REQUIRED
     Route: 048
     Dates: start: 20120101
  11. TRAZODONE [Concomitant]
     Active Substance: TRAZODONE HYDROCHLORIDE
     Indication: Insomnia
     Dosage: 100 MILLIGRAM DAILY;
     Route: 048
     Dates: start: 20200101, end: 20211121
  12. OLANZAPINE [Concomitant]
     Active Substance: OLANZAPINE
     Indication: Insomnia
     Dosage: 5 MILLIGRAM DAILY;
     Route: 048
     Dates: start: 20211122, end: 20211124
  13. OLANZAPINE [Concomitant]
     Active Substance: OLANZAPINE
     Indication: Nausea
  14. AMLODIPINE [Concomitant]
     Active Substance: AMLODIPINE BESYLATE
     Indication: Hypertension
     Dosage: 10 MILLIGRAM DAILY;
     Route: 048
     Dates: start: 20080101
  15. CARVEDILOL [Concomitant]
     Active Substance: CARVEDILOL
     Indication: Hypertension
     Dosage: 6.25 MILLIGRAM DAILY;
     Route: 048
     Dates: start: 20140101
  16. LISINOPRIL [Concomitant]
     Active Substance: LISINOPRIL
     Indication: Hypertension
     Dosage: 30 MILLIGRAM DAILY;
     Route: 048
     Dates: start: 20080101
  17. ALPRAZOLAM [Concomitant]
     Active Substance: ALPRAZOLAM
     Indication: Anxiety
     Dosage: AS REQUIRED
     Route: 048
     Dates: start: 20211110
  18. FLUOXETINE [Concomitant]
     Active Substance: FLUOXETINE HYDROCHLORIDE
     Indication: Depression
     Dosage: 20 MILLIGRAM DAILY;
     Route: 048
     Dates: start: 20160101
  19. FLUOXETINE [Concomitant]
     Active Substance: FLUOXETINE HYDROCHLORIDE
     Indication: Anxiety
  20. DULAGLUTIDE [Concomitant]
     Active Substance: DULAGLUTIDE
     Indication: Diabetes mellitus
     Route: 048
     Dates: start: 20170101
  21. INSULIN GLARGINE [Concomitant]
     Active Substance: INSULIN GLARGINE
     Indication: Diabetes mellitus
     Route: 058
     Dates: start: 20170101
  22. INSULIN LISPRO [Concomitant]
     Active Substance: INSULIN LISPRO
     Indication: Diabetes mellitus
     Route: 058
     Dates: start: 20170101
  23. PANTOPRAZOLE [Concomitant]
     Active Substance: PANTOPRAZOLE
     Indication: Gastrooesophageal reflux disease
     Dosage: 40 MILLIGRAM DAILY;
     Route: 048
     Dates: start: 20171201
  24. LOPERAMIDE [Concomitant]
     Active Substance: LOPERAMIDE
     Indication: Diarrhoea
     Dosage: 4 MG,1 AS REQUIRED
     Route: 048
     Dates: start: 20211101
  25. LOPERAMIDE [Concomitant]
     Active Substance: LOPERAMIDE
     Dosage: 2 TABLET
     Route: 048
     Dates: start: 20211028, end: 20211101
  26. VITAMIN B6 [Concomitant]
     Active Substance: PYRIDOXINE HYDROCHLORIDE
     Indication: Vitamin B6 deficiency
     Dosage: 100 MILLIGRAM DAILY;
     Route: 048
     Dates: start: 20210801
  27. VITAMIN D3 [Concomitant]
     Active Substance: CHOLECALCIFEROL
     Indication: Vitamin D deficiency
     Route: 048
     Dates: start: 20130101
  28. PANCRELIPASE [Concomitant]
     Active Substance: PANCRELIPASE
     Indication: Pancreatic enzymes decreased
     Route: 048
     Dates: start: 20210101
  29. OXYGEN [Concomitant]
     Active Substance: OXYGEN
     Indication: Sleep apnoea syndrome
     Route: 045
     Dates: start: 20210601, end: 20211124
  30. ONDANSETRON [Concomitant]
     Active Substance: ONDANSETRON
     Indication: Nausea
     Route: 048
     Dates: start: 20211014
  31. ONDANSETRON [Concomitant]
     Active Substance: ONDANSETRON
     Route: 048
     Dates: start: 20211124

REACTIONS (8)
  - Pyrexia [Recovered/Resolved]
  - Blood creatinine increased [Recovered/Resolved]
  - Hypoxia [Not Recovered/Not Resolved]
  - Hypotension [Recovered/Resolved]
  - Cough [Unknown]
  - Nasal congestion [Unknown]
  - Acute kidney injury [Recovered/Resolved]
  - Dysphagia [Recovered/Resolved]

NARRATIVE: CASE EVENT DATE: 20210101
